FAERS Safety Report 24632148 (Version 1)
Quarter: 2024Q4

REPORT INFORMATION
  Report Type: Spontaneous
  Country: US (occurrence: US)
  Receive Date: 20241118
  Receipt Date: 20241118
  Transmission Date: 20250115
  Serious: Yes (Hospitalization, Other)
  Sender: ARTHUR GROUP LLC
  Company Number: US-ARTHUR-2024AGLIT00001

PATIENT
  Age: 26 Year
  Sex: Male

DRUGS (2)
  1. SEVELAMER [Suspect]
     Active Substance: SEVELAMER
     Indication: Product used for unknown indication
     Route: 065
  2. CALCIUM ACETATE [Concomitant]
     Active Substance: CALCIUM ACETATE
     Route: 065

REACTIONS (1)
  - Appendicitis [Recovered/Resolved]
